FAERS Safety Report 6237862-1 (Version None)
Quarter: 2009Q2

REPORT INFORMATION
  Report Type: 
  Country: None (occurrence: None)
  Receive Date: 20090617
  Receipt Date: 20090601
  Transmission Date: 20091009
  Serious: Yes (Hospitalization, Other)
  Sender: FDA-Public Use
  Company Number: 2009RR-24777

PATIENT
  Age: 54 Year
  Sex: Female
  Weight: 55 kg

DRUGS (5)
  1. ETODOLAC [Suspect]
     Indication: ARTHRALGIA
     Dosage: 600 MG, ORAL
     Route: 048
     Dates: start: 20071205, end: 20090301
  2. AMLODIPINE [Concomitant]
  3. BENDROFLUMETHIAZIDE (BENDROFLUAZIDE) [Concomitant]
  4. LANSOPRAZOLE [Concomitant]
  5. RAMIPRIL [Concomitant]

REACTIONS (2)
  - ASPARTATE AMINOTRANSFERASE INCREASED [None]
  - BLOOD ALKALINE PHOSPHATASE INCREASED [None]
